FAERS Safety Report 15776127 (Version 3)
Quarter: 2019Q1

REPORT INFORMATION
  Report Type: Spontaneous
  Country: IT (occurrence: IT)
  Receive Date: 20181231
  Receipt Date: 20190311
  Transmission Date: 20190417
  Serious: Yes (Life-Threatening)
  Sender: FDA-Public Use
  Company Number: IT-TEVA-2018-IT-993036

PATIENT
  Age: 62 Year
  Sex: Female
  Weight: 70 kg

DRUGS (3)
  1. ALLOPURINOLO TEVA [Suspect]
     Active Substance: ALLOPURINOL
     Dosage: 150 MILLIGRAM DAILY;
     Route: 048
     Dates: start: 20180501
  2. EUTIROX 125 MICROGRAMMI COMPRESSE [Concomitant]
     Route: 048
  3. PLAQUENIL [Concomitant]
     Active Substance: HYDROXYCHLOROQUINE SULFATE
     Route: 048

REACTIONS (2)
  - Rash [Unknown]
  - Foot deformity [Unknown]

NARRATIVE: CASE EVENT DATE: 20181001
